FAERS Safety Report 23612671 (Version 1)
Quarter: 2024Q1

REPORT INFORMATION
  Report Type: Spontaneous
  Country: US (occurrence: US)
  Receive Date: 20240308
  Receipt Date: 20240308
  Transmission Date: 20240409
  Serious: No
  Sender: FDA-Public Use
  Company Number: US-MYOVANT SCIENCES GMBH-2023MYSCI1100863

PATIENT
  Sex: Male

DRUGS (1)
  1. ORGOVYX [Suspect]
     Active Substance: RELUGOLIX
     Indication: Prostate cancer
     Dosage: 120 MILLIGRAM, QD
     Route: 048
     Dates: start: 202206, end: 20231117

REACTIONS (7)
  - Frequent bowel movements [Unknown]
  - Faecal volume increased [Unknown]
  - Hot flush [Not Recovered/Not Resolved]
  - Constipation [Recovering/Resolving]
  - Pollakiuria [Not Recovered/Not Resolved]
  - Haemorrhoids [Unknown]
  - Prostatic specific antigen increased [Unknown]

NARRATIVE: CASE EVENT DATE: 20220101
